FAERS Safety Report 5260100-3 (Version None)
Quarter: 2007Q1

REPORT INFORMATION
  Report Type: 
  Country: None (occurrence: None)
  Receive Date: 20070309
  Receipt Date: 20060313
  Transmission Date: 20070707
  Serious: No
  Sender: FDA-Public Use
  Company Number: US-GLAXOSMITHKLINE-A0597069A

PATIENT
  Sex: Female

DRUGS (2)
  1. NICORETTE (MINT) [Suspect]
     Dates: start: 20060308, end: 20060308
  2. NICORETTE (MINT) [Suspect]
     Dates: start: 20060308, end: 20060308

REACTIONS (2)
  - HEADACHE [None]
  - MIGRAINE [None]
